FAERS Safety Report 17189372 (Version 2)
Quarter: 2020Q1

REPORT INFORMATION
  Report Type: Spontaneous
  Country: JP (occurrence: JP)
  Receive Date: 20191223
  Receipt Date: 20200117
  Transmission Date: 20200409
  Serious: Yes (Death, Other)
  Sender: FDA-Public Use
  Company Number: JP-TEVA-2019-JP-1157779

PATIENT
  Age: 88 Year
  Sex: Male

DRUGS (3)
  1. AZILECT [Suspect]
     Active Substance: RASAGILINE MESYLATE
     Indication: PARKINSON^S DISEASE
     Dosage: 1 MILLIGRAM DAILY;
     Route: 048
     Dates: start: 2019
  2. DOPACOL [Concomitant]
     Active Substance: CARBIDOPA\LEVODOPA
  3. METODRIN [Concomitant]

REACTIONS (3)
  - Death [Fatal]
  - Parkinson^s disease [Unknown]
  - Dysphagia [Unknown]
